FAERS Safety Report 9093636 (Version 1)
Quarter: 2013Q1

REPORT INFORMATION
  Report Type: Spontaneous
  Country: US (occurrence: None)
  Receive Date: 20130213
  Receipt Date: 20130213
  Transmission Date: 20140127
  Serious: No
  Sender: FDA-Public Use
  Company Number: None

PATIENT
  Sex: Female
  Weight: 47.17 kg

DRUGS (1)
  1. WELCHOL [Suspect]
     Indication: BLOOD CHOLESTEROL INCREASED
     Route: 048
     Dates: start: 20120831, end: 20130131

REACTIONS (9)
  - Constipation [None]
  - Nausea [None]
  - Injury [None]
  - Asthenia [None]
  - Oropharyngeal pain [None]
  - Influenza like illness [None]
  - Rhinorrhoea [None]
  - Myalgia [None]
  - Dyspepsia [None]
